FAERS Safety Report 7955587-9 (Version None)
Quarter: 2011Q4

REPORT INFORMATION
  Report Type: 
  Country: None (occurrence: None)
  Receive Date: 20111202
  Receipt Date: 20111123
  Transmission Date: 20120403
  Serious: Yes (Hospitalization)
  Sender: FDA-Public Use
  Company Number: US-ASTRAZENECA-2011SE71169

PATIENT
  Sex: Female

DRUGS (5)
  1. ATACAND [Suspect]
     Indication: HYPERTENSION
     Route: 048
  2. ATACAND HCT [Suspect]
     Route: 048
  3. TECTANA [Suspect]
     Route: 065
  4. DIOVAN [Suspect]
     Route: 065
  5. ATACAND [Suspect]
     Route: 048

REACTIONS (5)
  - VENTRICULAR TACHYCARDIA [None]
  - PNEUMONIA [None]
  - ASTHMA [None]
  - VENTRICULAR EXTRASYSTOLES [None]
  - SWELLING FACE [None]
